FAERS Safety Report 10052244 (Version 2)
Quarter: 2014Q2

REPORT INFORMATION
  Report Type: Spontaneous
  Country: GB (occurrence: GB)
  Receive Date: 20140402
  Receipt Date: 20140403
  Transmission Date: 20141212
  Serious: Yes (Other)
  Sender: FDA-Public Use
  Company Number: GB-ROCHE-1373139

PATIENT
  Sex: Male

DRUGS (3)
  1. MABTHERA [Suspect]
     Indication: NON-HODGKIN^S LYMPHOMA
     Route: 065
     Dates: start: 201305
  2. IBRUTINIB [Concomitant]
  3. CYTARABINE [Concomitant]

REACTIONS (2)
  - Non-Hodgkin^s lymphoma [Unknown]
  - Blood disorder [Unknown]
